FAERS Safety Report 12700255 (Version 1)
Quarter: 2016Q3

REPORT INFORMATION
  Report Type: Spontaneous
  Country: IT (occurrence: IT)
  Receive Date: 20160830
  Receipt Date: 20160830
  Transmission Date: 20161109
  Serious: Yes (Hospitalization)
  Sender: FDA-Public Use
  Company Number: IT-INGENUS PHARMACEUTICALS, LLC-ING201608-000024

PATIENT
  Age: 77 Year
  Sex: Male

DRUGS (5)
  1. ASPIRIN. [Concomitant]
     Active Substance: ASPIRIN
  2. FUROSEMIDE. [Concomitant]
     Active Substance: FUROSEMIDE
  3. FLUVASTATIN [Suspect]
     Active Substance: FLUVASTATIN SODIUM
     Indication: CORONARY ARTERY DISEASE
  4. PROBENCID AND COLCHICINE [Suspect]
     Active Substance: COLCHICINE\PROBENECID
     Indication: GOUTY ARTHRITIS
  5. INSULIN [Concomitant]
     Active Substance: INSULIN NOS

REACTIONS (2)
  - Rhabdomyolysis [Recovered/Resolved]
  - Drug interaction [Recovered/Resolved]
